FAERS Safety Report 7441572-2 (Version None)
Quarter: 2011Q2

REPORT INFORMATION
  Report Type: 
  Country: None (occurrence: None)
  Receive Date: 20110428
  Receipt Date: 20110426
  Transmission Date: 20111010
  Serious: No
  Sender: FDA-Public Use
  Company Number: US-PFIZER INC-2011090112

PATIENT
  Sex: Female
  Weight: 47.619 kg

DRUGS (6)
  1. MELOXICAM [Concomitant]
     Dosage: UNK
  2. PRIMIDONE [Concomitant]
     Dosage: UNK
  3. GEODON [Suspect]
     Indication: MANIA
     Dosage: 80 MG, 2X/DAY
     Route: 048
     Dates: start: 20101201
  4. GEODON [Suspect]
     Dosage: 60 MG, 2X/DAY
     Route: 048
     Dates: start: 20110101
  5. DEPAKOTE [Concomitant]
     Dosage: UNK
  6. BENICAR [Concomitant]
     Dosage: UNK

REACTIONS (2)
  - THYROID FUNCTION TEST ABNORMAL [None]
  - LETHARGY [None]
